FAERS Safety Report 4999425-5 (Version None)
Quarter: 2006Q2

REPORT INFORMATION
  Report Type: 
  Country: None (occurrence: None)
  Receive Date: 20060509
  Receipt Date: 20060425
  Transmission Date: 20061013
  Serious: Yes (Hospitalization)
  Sender: FDA-Public Use
  Company Number: 222583

PATIENT
  Age: 70 Year
  Sex: Female
  Weight: 68 kg

DRUGS (15)
  1. AVASTIN [Suspect]
     Indication: COLORECTAL CANCER METASTATIC
     Dosage: 5 MG/KG, Q2W, INTRAVENOUS
     Route: 042
  2. CEFOXITIN (CEFOXITIN) [Concomitant]
  3. PHENERGAN (PROMETHAZINE HYDROCHLORIDE) [Concomitant]
  4. ZOFRAN [Concomitant]
  5. MACROBID [Concomitant]
  6. ZESTRIL [Concomitant]
  7. TOPROL-XL [Concomitant]
  8. LASIX [Concomitant]
  9. COLACE (DOCUSATE SODIUM) [Concomitant]
  10. COUMADIN [Concomitant]
  11. EFFEXOR [Concomitant]
  12. POTASSIUM (POTASSIUM NOS) [Concomitant]
  13. OXYCONTIN [Concomitant]
  14. PROTONIX [Concomitant]
  15. RITALIN [Concomitant]

REACTIONS (18)
  - ACTIVATED PARTIAL THROMBOPLASTIN TIME SHORTENED [None]
  - ASTHENIA [None]
  - ATELECTASIS [None]
  - BLOOD LACTATE DEHYDROGENASE INCREASED [None]
  - BLOOD PRESSURE SYSTOLIC INCREASED [None]
  - HAEMATOCRIT DECREASED [None]
  - HAEMOGLOBIN DECREASED [None]
  - INTERNATIONAL NORMALISED RATIO INCREASED [None]
  - LUNG NEOPLASM [None]
  - METASTASES TO BONE [None]
  - NAUSEA [None]
  - NEPHRITIC SYNDROME [None]
  - OEDEMA PERIPHERAL [None]
  - PLEURAL EFFUSION [None]
  - RENAL FAILURE [None]
  - VISUAL ACUITY REDUCED [None]
  - VOMITING [None]
  - WEIGHT DECREASED [None]
